FAERS Safety Report 18282330 (Version 1)
Quarter: 2020Q3

REPORT INFORMATION
  Report Type: Spontaneous
  Country: US (occurrence: US)
  Receive Date: 20200917
  Receipt Date: 20200917
  Transmission Date: 20201103
  Serious: No
  Sender: FDA-Public Use
  Company Number: None

PATIENT
  Age: 47 Year
  Sex: Female

DRUGS (1)
  1. MAVYRET [Suspect]
     Active Substance: GLECAPREVIR\PIBRENTASVIR
     Dosage: ?          OTHER DOSE:100?10MG;?
     Route: 048
     Dates: start: 202008

REACTIONS (3)
  - Seizure [None]
  - Therapy interrupted [None]
  - Myocardial infarction [None]

NARRATIVE: CASE EVENT DATE: 20200916
